FAERS Safety Report 13291892 (Version 2)
Quarter: 2017Q1

REPORT INFORMATION
  Report Type: Spontaneous
  Country: CA (occurrence: CA)
  Receive Date: 20170303
  Receipt Date: 20170317
  Transmission Date: 20170428
  Serious: Yes (Other)
  Sender: FDA-Public Use
  Company Number: CA-GLAXOSMITHKLINE-CA2017GSK029382

PATIENT
  Sex: Female

DRUGS (2)
  1. VENTOLIN [Suspect]
     Active Substance: ALBUTEROL SULFATE
     Indication: PRODUCT USED FOR UNKNOWN INDICATION
     Dosage: UNK
     Dates: start: 2002
  2. PREDNISONE. [Suspect]
     Active Substance: PREDNISONE
     Indication: PRODUCT USED FOR UNKNOWN INDICATION

REACTIONS (9)
  - Diabetes mellitus [Unknown]
  - Sleep apnoea syndrome [Unknown]
  - Pituitary-dependent Cushing^s syndrome [Unknown]
  - Spinal column stenosis [Unknown]
  - Spondylitis [Unknown]
  - Thyroid disorder [Unknown]
  - Dyspnoea [Unknown]
  - Hypertension [Unknown]
  - Blood cholesterol increased [Unknown]
